FAERS Safety Report 9616672 (Version 1)
Quarter: 2013Q4

REPORT INFORMATION
  Report Type: Report from Study
  Country: AR (occurrence: AR)
  Receive Date: 20131011
  Receipt Date: 20131011
  Transmission Date: 20140711
  Serious: Yes (Other)
  Sender: FDA-Public Use
  Company Number: PHHY2013AR114321

PATIENT
  Sex: Male

DRUGS (1)
  1. DIOVAN [Suspect]
     Indication: CARDIAC DISORDER
     Dosage: 1 DF (160MG), DAILY
     Route: 048

REACTIONS (3)
  - Nasal polyps [Not Recovered/Not Resolved]
  - Mouth breathing [Unknown]
  - Dry throat [Not Recovered/Not Resolved]
